FAERS Safety Report 6725946-0 (Version None)
Quarter: 2010Q2

REPORT INFORMATION
  Report Type: 
  Country: None (occurrence: None)
  Receive Date: 20100512
  Receipt Date: 20100430
  Transmission Date: 20101027
  Serious: Yes (Hospitalization)
  Sender: FDA-Public Use
  Company Number: 1000013739

PATIENT
  Age: 35 Year
  Sex: Female

DRUGS (1)
  1. ESCITALOPRAM [Suspect]
     Indication: ASTHENIA
     Dosage: 10 MG

REACTIONS (5)
  - ANXIETY [None]
  - NEGATIVE THOUGHTS [None]
  - OFF LABEL USE [None]
  - PARADOXICAL DRUG REACTION [None]
  - WEIGHT DECREASED [None]
